FAERS Safety Report 10035103 (Version 2)
Quarter: 2014Q2

REPORT INFORMATION
  Report Type: Spontaneous
  Country: US (occurrence: US)
  Receive Date: 20140325
  Receipt Date: 20140408
  Transmission Date: 20141212
  Serious: Yes (Hospitalization, Other)
  Sender: FDA-Public Use
  Company Number: US-BAXTER-2014BAX014785

PATIENT
  Sex: Female
  Weight: 72.73 kg

DRUGS (8)
  1. DIANEAL LOW CALCIUM [Suspect]
     Indication: RENAL FAILURE CHRONIC
     Route: 033
     Dates: start: 201011
  2. DIANEAL LOW CALCIUM [Suspect]
     Route: 033
     Dates: start: 201011
  3. DIANEAL LOW CALCIUM [Suspect]
     Route: 033
     Dates: start: 201011
  4. DIANEAL LOW CALCIUM [Suspect]
     Route: 033
  5. DIANEAL LOW CALCIUM [Suspect]
     Indication: RENAL FAILURE CHRONIC
     Route: 033
     Dates: start: 201011
  6. DIANEAL LOW CALCIUM [Suspect]
     Route: 033
     Dates: start: 201011
  7. DIANEAL LOW CALCIUM [Suspect]
     Route: 033
     Dates: start: 201011
  8. DIANEAL LOW CALCIUM [Suspect]
     Route: 033

REACTIONS (4)
  - Mitral valve incompetence [Recovered/Resolved]
  - Myocardial infarction [Not Recovered/Not Resolved]
  - Fluid retention [Recovered/Resolved]
  - Hypotension [Recovered/Resolved]
